FAERS Safety Report 10068402 (Version 2)
Quarter: 2014Q2

REPORT INFORMATION
  Report Type: Spontaneous
  Country: US (occurrence: US)
  Receive Date: 20140409
  Receipt Date: 20140528
  Transmission Date: 20141212
  Serious: Yes (Death, Life-Threatening, Hospitalization, Other)
  Sender: FDA-Public Use
  Company Number: US-MERCK-1404USA004167

PATIENT
  Sex: Male
  Weight: 72.56 kg

DRUGS (4)
  1. JANUVIA [Suspect]
     Indication: TYPE 2 DIABETES MELLITUS
     Dosage: 100 MG, QD
     Route: 048
     Dates: start: 20111213, end: 20120323
  2. NITROGLYCERIN [Concomitant]
     Indication: CORONARY ARTERY DISEASE
     Dosage: UNK, PRN
     Route: 060
  3. GLIPIZIDE [Concomitant]
     Indication: TYPE 2 DIABETES MELLITUS
  4. METFORMIN [Concomitant]
     Indication: TYPE 2 DIABETES MELLITUS

REACTIONS (13)
  - Adenocarcinoma pancreas [Fatal]
  - Bile duct stent insertion [Unknown]
  - Angina pectoris [Unknown]
  - Cardiomegaly [Unknown]
  - Hypertension [Unknown]
  - Hyperlipidaemia [Unknown]
  - Depression [Unknown]
  - Diabetic neuropathy [Unknown]
  - Cardiac murmur [Unknown]
  - Atrioventricular block first degree [Unknown]
  - Ventricular extrasystoles [Unknown]
  - Electrocardiogram ST segment depression [Unknown]
  - Oedema peripheral [Not Recovered/Not Resolved]
